FAERS Safety Report 9704605 (Version 4)
Quarter: 2015Q1

REPORT INFORMATION
  Report Type: Report from Study
  Country: CA (occurrence: CA)
  Receive Date: 20131122
  Receipt Date: 20150312
  Transmission Date: 20150721
  Serious: Yes (Hospitalization)
  Sender: FDA-Public Use
  Company Number: CA-ROCHE-1251426

PATIENT
  Age: 14 Year
  Sex: Male
  Weight: 34.7 kg

DRUGS (49)
  1. ACYCLOVIR. [Concomitant]
     Active Substance: ACYCLOVIR
     Route: 042
     Dates: start: 20121231, end: 20130107
  2. GABAPENTIN. [Concomitant]
     Active Substance: GABAPENTIN
     Dosage: BY MOUTH EVERY MORNING
     Route: 048
     Dates: start: 20140110
  3. ENALAPRIL [Concomitant]
     Active Substance: ENALAPRIL
     Route: 048
     Dates: start: 20081210, end: 20090512
  4. CELEXA [Concomitant]
     Active Substance: CITALOPRAM HYDROBROMIDE
     Route: 048
     Dates: start: 20110930, end: 20111012
  5. FERROUS FUMARATE [Concomitant]
     Active Substance: FERROUS FUMARATE
     Route: 048
     Dates: start: 20090429, end: 20090513
  6. ARISTOSPAN [Concomitant]
     Active Substance: TRIAMCINOLONE HEXACETONIDE
     Route: 065
     Dates: start: 20110208, end: 20110208
  7. CELEXA [Concomitant]
     Active Substance: CITALOPRAM HYDROBROMIDE
     Route: 048
     Dates: start: 20111013
  8. PAMIDRONATE [Concomitant]
     Active Substance: PAMIDRONATE DISODIUM
     Indication: OSTEOPOROSIS
     Route: 042
     Dates: start: 20040607, end: 20060301
  9. ARISTOSPAN [Concomitant]
     Active Substance: TRIAMCINOLONE HEXACETONIDE
     Route: 065
     Dates: start: 20110208, end: 20110208
  10. ARISTOSPAN [Concomitant]
     Active Substance: TRIAMCINOLONE HEXACETONIDE
     Route: 065
     Dates: start: 20100410, end: 20100410
  11. TOCILIZUMAB [Suspect]
     Active Substance: TOCILIZUMAB
     Indication: JUVENILE IDIOPATHIC ARTHRITIS
     Route: 042
     Dates: start: 20081030
  12. PREDNISONE. [Suspect]
     Active Substance: PREDNISONE
     Indication: PRODUCT USED FOR UNKNOWN INDICATION
     Route: 065
  13. PREDNISONE. [Suspect]
     Active Substance: PREDNISONE
     Dosage: 5MG/2MG
     Route: 048
     Dates: start: 20130704
  14. PREDNISONE. [Suspect]
     Active Substance: PREDNISONE
     Route: 065
  15. AMLODIPINE [Concomitant]
     Active Substance: AMLODIPINE BESYLATE
     Indication: HYPERTENSION
     Route: 048
     Dates: start: 20110304, end: 20110316
  16. AMLODIPINE [Concomitant]
     Active Substance: AMLODIPINE BESYLATE
     Route: 048
     Dates: start: 20110317, end: 201106
  17. ENALAPRIL [Concomitant]
     Active Substance: ENALAPRIL
     Indication: HYPERTENSION
     Route: 065
  18. IBUPROFEN. [Suspect]
     Active Substance: IBUPROFEN
     Route: 048
     Dates: start: 201011, end: 20110909
  19. IBUPROFEN. [Suspect]
     Active Substance: IBUPROFEN
     Route: 048
     Dates: start: 20091001, end: 201006
  20. FOLIC ACID. [Concomitant]
     Active Substance: FOLIC ACID
     Route: 048
     Dates: start: 20020203, end: 20100315
  21. AMOXIL [Concomitant]
     Active Substance: AMOXICILLIN
     Route: 048
     Dates: start: 20120509, end: 20120515
  22. ACETAMINOPHEN. [Concomitant]
     Active Substance: ACETAMINOPHEN
     Route: 065
  23. ENALAPRIL [Concomitant]
     Active Substance: ENALAPRIL
     Route: 048
     Dates: start: 20090528, end: 20100419
  24. ENALAPRIL [Concomitant]
     Active Substance: ENALAPRIL
     Route: 048
     Dates: start: 20130704
  25. OMEPRAZOLE. [Concomitant]
     Active Substance: OMEPRAZOLE
     Route: 065
  26. TYLENOL [Concomitant]
     Active Substance: ACETAMINOPHEN
     Route: 065
  27. BISMUTH SUBSALICYLATE. [Concomitant]
     Active Substance: BISMUTH SUBSALICYLATE
     Route: 065
  28. TOCILIZUMAB [Suspect]
     Active Substance: TOCILIZUMAB
     Indication: JUVENILE IDIOPATHIC ARTHRITIS
     Dosage: LAST DOSE PRIOR TO SAE:04/JUL/2013
     Route: 042
     Dates: end: 20130718
  29. PREDNISONE. [Suspect]
     Active Substance: PREDNISONE
     Dosage: BY ENTERAL TUBE DAILY BEFORE BED
     Route: 048
     Dates: start: 20140110
  30. FERROUS FUMARATE [Concomitant]
     Active Substance: FERROUS FUMARATE
     Route: 048
     Dates: start: 20090514
  31. ACYCLOVIR. [Concomitant]
     Active Substance: ACYCLOVIR
     Route: 048
     Dates: start: 20120108, end: 20130114
  32. AMLODIPINE [Concomitant]
     Active Substance: AMLODIPINE BESYLATE
     Route: 048
     Dates: start: 20040203, end: 20100425
  33. ARISTOSPAN [Concomitant]
     Active Substance: TRIAMCINOLONE HEXACETONIDE
     Route: 065
     Dates: start: 20110208, end: 20110208
  34. ENALAPRIL [Concomitant]
     Active Substance: ENALAPRIL
     Route: 048
     Dates: start: 20090513, end: 20090527
  35. ENALAPRIL [Concomitant]
     Active Substance: ENALAPRIL
     Route: 048
     Dates: start: 20100425, end: 20101124
  36. ENALAPRIL [Concomitant]
     Active Substance: ENALAPRIL
     Route: 048
     Dates: start: 20080730, end: 20081209
  37. PREDNISONE. [Suspect]
     Active Substance: PREDNISONE
     Route: 048
     Dates: start: 20100721, end: 20100804
  38. PREDNISONE. [Suspect]
     Active Substance: PREDNISONE
     Dosage: QAM BY MOUTH EVERY MORNING
     Route: 048
     Dates: start: 20140110
  39. IBUPROFEN. [Suspect]
     Active Substance: IBUPROFEN
     Indication: PRODUCT USED FOR UNKNOWN INDICATION
     Route: 048
     Dates: start: 20120106
  40. IBUPROFEN. [Suspect]
     Active Substance: IBUPROFEN
     Route: 048
     Dates: start: 201001, end: 201011
  41. IBUPROFEN. [Suspect]
     Active Substance: IBUPROFEN
     Route: 048
     Dates: start: 20110913, end: 20120105
  42. RANITIDINE [Concomitant]
     Active Substance: RANITIDINE\RANITIDINE HYDROCHLORIDE
     Indication: ABDOMINAL PAIN
     Route: 048
     Dates: start: 20021112, end: 200308
  43. ENALAPRIL [Concomitant]
     Active Substance: ENALAPRIL
     Route: 065
  44. TOCILIZUMAB [Suspect]
     Active Substance: TOCILIZUMAB
     Dosage: TEMPORARILY INTERRUPTED ON 11/NOV/2013. ?DATE OF LAST DOSE PRIOR TO SAE: 10/OCT/2013
     Route: 042
     Dates: end: 20131111
  45. GABAPENTIN. [Concomitant]
     Active Substance: GABAPENTIN
     Indication: PAIN MANAGEMENT
     Route: 065
     Dates: start: 20130511
  46. ACETAMINOPHEN. [Concomitant]
     Active Substance: ACETAMINOPHEN
     Route: 048
     Dates: start: 20120119
  47. MORPHINE [Concomitant]
     Active Substance: MORPHINE
     Route: 065
  48. ENALAPRIL [Concomitant]
     Active Substance: ENALAPRIL
     Route: 048
     Dates: start: 20130704
  49. M-ESLON [Concomitant]
     Active Substance: MORPHINE SULFATE
     Route: 048
     Dates: end: 20140117

REACTIONS (2)
  - Arthritis [Recovered/Resolved]
  - Gastroenteritis [Recovered/Resolved]

NARRATIVE: CASE EVENT DATE: 20130714
